FAERS Safety Report 15826225 (Version 2)
Quarter: 2019Q1

REPORT INFORMATION
  Report Type: Spontaneous
  Country: MX (occurrence: MX)
  Receive Date: 20190115
  Receipt Date: 20190214
  Transmission Date: 20190417
  Serious: Yes (Other)
  Sender: FDA-Public Use
  Company Number: MX-PFIZER INC-2019015524

PATIENT
  Age: 79 Year
  Sex: Male

DRUGS (17)
  1. ASPIRINA [Concomitant]
     Active Substance: ASPIRIN
     Dosage: 100 MG, 1X/DAY
     Dates: start: 1995
  2. LUCENTIS [Concomitant]
     Active Substance: RANIBIZUMAB
     Dosage: UNK
     Dates: start: 20180629
  3. LUCENTIS [Concomitant]
     Active Substance: RANIBIZUMAB
     Dosage: UNK
     Dates: start: 20180728
  4. LUCENTIS [Concomitant]
     Active Substance: RANIBIZUMAB
     Dosage: UNK
     Dates: start: 20181228
  5. LUCENTIS [Concomitant]
     Active Substance: RANIBIZUMAB
     Dosage: UNK
     Dates: start: 20190208
  6. LASIX [Concomitant]
     Active Substance: FUROSEMIDE
     Dosage: 40 MG, (1/2  DF 1X/DAY)
     Dates: start: 201012
  7. LUCENTIS [Concomitant]
     Active Substance: RANIBIZUMAB
     Dosage: UNK
     Dates: start: 20160805
  8. LOSARTAN. [Concomitant]
     Active Substance: LOSARTAN
     Dosage: 50 MG, (1/2 DF  1X/DAY)
     Dates: start: 201012
  9. INSPRA [Concomitant]
     Active Substance: EPLERENONE
     Dosage: 25 MG, (1/2 DF 1X7DAY)
     Dates: start: 201012
  10. LUCENTIS [Concomitant]
     Active Substance: RANIBIZUMAB
     Dosage: UNK
     Dates: start: 20160507
  11. LIPITOR [Concomitant]
     Active Substance: ATORVASTATIN CALCIUM
     Dosage: 40 MG, (1/2 TABLET) 3 TIMES A WEEK
     Dates: start: 201012
  12. DILATREND [Concomitant]
     Active Substance: CARVEDILOL
     Dosage: 6.25 MG, (1/4 DF 1 X/DAY)
     Dates: start: 201012
  13. SECOTEX OCAS [Concomitant]
     Active Substance: TAMSULOSIN
     Dosage: 1 DF, 3 PER WEEK
     Dates: start: 20141202
  14. VIAGRA [Suspect]
     Active Substance: SILDENAFIL CITRATE
     Indication: PULMONARY ARTERIAL PRESSURE INCREASED
     Dosage: 25 MG, 2X/DAY
     Dates: start: 201502, end: 201705
  15. OROXADIN [Concomitant]
     Active Substance: CIPROFIBRATE
     Dosage: 1 DF 100 MG,  (1 CAPSULE 3 TIMES A WEEK)
     Dates: start: 201012
  16. METFORMINE [METFORMIN] [Concomitant]
     Active Substance: METFORMIN HYDROCHLORIDE
     Dosage: 850 MG, 2X/DAY
     Dates: start: 2017
  17. LUCENTIS [Concomitant]
     Active Substance: RANIBIZUMAB
     Dosage: UNK
     Dates: start: 20160614

REACTIONS (3)
  - Product use in unapproved indication [Unknown]
  - Visual impairment [Unknown]
  - Retinal neovascularisation [Unknown]

NARRATIVE: CASE EVENT DATE: 20160505
